FAERS Safety Report 9204453 (Version 1)
Quarter: 2013Q2

REPORT INFORMATION
  Report Type: Spontaneous
  Country: US (occurrence: US)
  Receive Date: 20130402
  Receipt Date: 20130402
  Transmission Date: 20140414
  Serious: No
  Sender: FDA-Public Use
  Company Number: US-BAYER-2013-041335

PATIENT
  Sex: 0

DRUGS (5)
  1. ALEVE CAPLET [Suspect]
  2. CLARITIN D [Concomitant]
  3. HY VEE COLD [Concomitant]
  4. LORATADINE [Concomitant]
  5. NETI POT [Concomitant]

REACTIONS (1)
  - Drug ineffective [None]
